FAERS Safety Report 14913821 (Version 1)
Quarter: 2018Q2

REPORT INFORMATION
  Report Type: Report from Study
  Country: US (occurrence: US)
  Receive Date: 20180518
  Receipt Date: 20180518
  Transmission Date: 20180711
  Serious: Yes (Hospitalization, Disabling, Other)
  Sender: FDA-Public Use
  Company Number: US-GILEAD-2018-0339141

PATIENT
  Age: 67 Year
  Sex: Female

DRUGS (1)
  1. LEDIPASVIR/SOFOSBUVIR [Suspect]
     Active Substance: LEDIPASVIR\SOFOSBUVIR
     Indication: CHRONIC HEPATITIS C
     Dosage: 1 DF, QD
     Route: 048
     Dates: start: 20170401, end: 20170701

REACTIONS (5)
  - Hepatic pain [Recovered/Resolved with Sequelae]
  - Nausea [Recovered/Resolved]
  - Headache [Recovered/Resolved]
  - Neoplasm malignant [Recovered/Resolved with Sequelae]
  - Asthenia [Recovered/Resolved]

NARRATIVE: CASE EVENT DATE: 20170401
